FAERS Safety Report 4521558-8 (Version None)
Quarter: 2004Q4

REPORT INFORMATION
  Report Type: 
  Country: None (occurrence: None)
  Receive Date: 20041208
  Receipt Date: 20041208
  Transmission Date: 20050328
  Serious: Yes (Other)
  Sender: FDA-Public Use
  Company Number: None

PATIENT
  Sex: Male
  Weight: 95.2554 kg

DRUGS (2)
  1. ZICAM   MAXIMM [Suspect]
     Indication: NASOPHARYNGITIS
     Dosage: ONE SQUIRT    EACH NOSTRIL   NASAL
     Route: 045
     Dates: start: 20020101, end: 20041205
  2. ZICAM   MAXIMM [Suspect]
     Indication: PROPHYLAXIS
     Dosage: ONE SQUIRT    EACH NOSTRIL   NASAL
     Route: 045
     Dates: start: 20020101, end: 20041205

REACTIONS (2)
  - AGEUSIA [None]
  - ANOSMIA [None]
